FAERS Safety Report 8458151-0 (Version None)
Quarter: 2012Q2

REPORT INFORMATION
  Report Type: 
  Country: None (occurrence: None)
  Receive Date: 20120622
  Receipt Date: 20120619
  Transmission Date: 20120825
  Serious: Yes (Death, Hospitalization)
  Sender: FDA-Public Use
  Company Number: US-B.I. PHARMACEUTICALS,INC./RIDGEFIELD-2012-BP-14038BP

PATIENT
  Sex: Male

DRUGS (3)
  1. PRADAXA [Suspect]
     Dates: start: 20120601, end: 20120601
  2. ZOCOR [Concomitant]
     Indication: BLOOD CHOLESTEROL INCREASED
     Route: 048
  3. ASPIRIN [Suspect]
     Dates: start: 20120601, end: 20120601

REACTIONS (5)
  - REYE'S SYNDROME [None]
  - AORTIC VALVE DISEASE [None]
  - RENAL FAILURE [None]
  - INTERNATIONAL NORMALISED RATIO INCREASED [None]
  - HEPATIC FAILURE [None]
